FAERS Safety Report 4969158-X (Version None)
Quarter: 2006Q2

REPORT INFORMATION
  Report Type: 
  Country: None (occurrence: None)
  Receive Date: 20060411
  Receipt Date: 20050712
  Transmission Date: 20061013
  Serious: No
  Sender: FDA-Public Use
  Company Number: US-BRISTOL-MYERS SQUIBB COMPANY-13126057

PATIENT
  Age: 51 Year
  Sex: Female

DRUGS (4)
  1. CARBOPLATIN [Suspect]
     Indication: OVARIAN CANCER
     Route: 042
     Dates: start: 20050712, end: 20050712
  2. DECADRON [Concomitant]
     Indication: PREMEDICATION
     Route: 042
  3. ALOXI [Concomitant]
     Indication: PREMEDICATION
     Route: 042
  4. EFFEXOR [Concomitant]

REACTIONS (1)
  - PRURITUS [None]
